FAERS Safety Report 6855797-8 (Version None)
Quarter: 2010Q3

REPORT INFORMATION
  Report Type: 
  Country: None (occurrence: None)
  Receive Date: 20100719
  Receipt Date: 20100618
  Transmission Date: 20110219
  Serious: No
  Sender: FDA-Public Use
  Company Number: US-BAYER-201017261BCC

PATIENT
  Age: 79 Year
  Sex: Female
  Weight: 45 kg

DRUGS (7)
  1. ALEVE [Suspect]
     Indication: ARTHRALGIA
     Dosage: TOTAL DAILY DOSE: 220 MG  UNIT DOSE: 220 MG
     Route: 048
     Dates: start: 20100615, end: 20100616
  2. VAGIFEM [Concomitant]
  3. VITAMIN E [Concomitant]
  4. VITAMIN D [Concomitant]
  5. VITAMIN C [Concomitant]
  6. BORON [Concomitant]
  7. SOLAR RAY CALCIUM [Concomitant]

REACTIONS (2)
  - DRY MOUTH [None]
  - SOMNOLENCE [None]
